FAERS Safety Report 22142538 (Version 1)
Quarter: 2023Q1

REPORT INFORMATION
  Report Type: Spontaneous
  Country: US (occurrence: US)
  Receive Date: 20230327
  Receipt Date: 20230327
  Transmission Date: 20230418
  Serious: No
  Sender: FDA-Public Use
  Company Number: US-GLAXOSMITHKLINE-USCH2023012870

PATIENT

DRUGS (1)
  1. EMERGEN-C [Suspect]
     Active Substance: VITAMINS
     Indication: Oropharyngeal pain
     Dosage: UNK

REACTIONS (4)
  - Facial discomfort [Unknown]
  - Rhinorrhoea [Unknown]
  - Drug effective for unapproved indication [Unknown]
  - Product use in unapproved indication [Unknown]
